FAERS Safety Report 6266979-0 (Version None)
Quarter: 2009Q3

REPORT INFORMATION
  Report Type: 
  Country: None (occurrence: None)
  Receive Date: 20090714
  Receipt Date: 20090428
  Transmission Date: 20100115
  Serious: Yes (Hospitalization, Other)
  Sender: FDA-Public Use
  Company Number: AT-ASTRAZENECA-2009PK00443

PATIENT
  Age: 17012 Day
  Sex: Female

DRUGS (2)
  1. NOLVADEX [Suspect]
     Indication: BREAST CANCER
     Route: 048
     Dates: start: 20050712, end: 20080701
  2. ZOLADEX [Concomitant]
     Indication: BREAST CANCER
     Route: 058
     Dates: start: 20050712, end: 20080701

REACTIONS (2)
  - CERVICITIS [None]
  - METRORRHAGIA [None]
